FAERS Safety Report 7512197 (Version 6)
Quarter: 2013Q1

REPORT INFORMATION
  Report Type: Report from Study
  Country: US (occurrence: US)
  Receive Date: 20100730
  Receipt Date: 20130320
  Transmission Date: 20140127
  Serious: Yes (Death, Hospitalization, Other)
  Sender: FDA-Public Use
  Company Number: US-ALEXION-A201000853

PATIENT
  Age: 73 None
  Sex: Female

DRUGS (3)
  1. SOLIRIS [Suspect]
     Indication: PAROXYSMAL NOCTURNAL HAEMOGLOBINURIA
     Dosage: UNK
     Route: 042
     Dates: start: 20080215, end: 20100709
  2. PREDNISONE [Concomitant]
  3. FOLIC ACID [Concomitant]

REACTIONS (7)
  - Sepsis pasteurella [Recovered/Resolved]
  - Acute respiratory distress syndrome [Fatal]
  - Atrial fibrillation [Recovering/Resolving]
  - Blood pressure decreased [Recovering/Resolving]
  - Erythema [Recovering/Resolving]
  - Pain [Recovering/Resolving]
  - Jaundice [Recovering/Resolving]
